FAERS Safety Report 25940842 (Version 1)
Quarter: 2025Q4

REPORT INFORMATION
  Report Type: Spontaneous
  Country: EU (occurrence: EU)
  Receive Date: 20251020
  Receipt Date: 20251020
  Transmission Date: 20260118
  Serious: Yes (Other)
  Sender: MYLAN
  Company Number: None

PATIENT
  Age: 45 Year
  Sex: Female
  Weight: 60.5 kg

DRUGS (16)
  1. ROCURONIUM [Suspect]
     Active Substance: ROCURONIUM BROMIDE
     Indication: Neuromuscular blocking therapy
     Dosage: 40 MILLIGRAM
     Dates: start: 20250922, end: 20250922
  2. ROCURONIUM [Suspect]
     Active Substance: ROCURONIUM BROMIDE
     Dosage: 40 MILLIGRAM
     Dates: start: 20250922, end: 20250922
  3. ROCURONIUM [Suspect]
     Active Substance: ROCURONIUM BROMIDE
     Dosage: 40 MILLIGRAM
     Route: 042
     Dates: start: 20250922, end: 20250922
  4. ROCURONIUM [Suspect]
     Active Substance: ROCURONIUM BROMIDE
     Dosage: 40 MILLIGRAM
     Route: 042
     Dates: start: 20250922, end: 20250922
  5. ROCURONIUM [Suspect]
     Active Substance: ROCURONIUM BROMIDE
     Dosage: 30 MILLIGRAM
     Dates: start: 20250922, end: 20250922
  6. ROCURONIUM [Suspect]
     Active Substance: ROCURONIUM BROMIDE
     Dosage: 30 MILLIGRAM
     Dates: start: 20250922, end: 20250922
  7. ROCURONIUM [Suspect]
     Active Substance: ROCURONIUM BROMIDE
     Dosage: 30 MILLIGRAM
     Route: 042
     Dates: start: 20250922, end: 20250922
  8. ROCURONIUM [Suspect]
     Active Substance: ROCURONIUM BROMIDE
     Dosage: 30 MILLIGRAM
     Route: 042
     Dates: start: 20250922, end: 20250922
  9. ROCURONIUM [Suspect]
     Active Substance: ROCURONIUM BROMIDE
     Dosage: 40 MILLIGRAM
     Dates: start: 20250922, end: 20250922
  10. ROCURONIUM [Suspect]
     Active Substance: ROCURONIUM BROMIDE
     Dosage: 40 MILLIGRAM
     Route: 042
     Dates: start: 20250922, end: 20250922
  11. ROCURONIUM [Suspect]
     Active Substance: ROCURONIUM BROMIDE
     Dosage: 40 MILLIGRAM
     Dates: start: 20250922, end: 20250922
  12. ROCURONIUM [Suspect]
     Active Substance: ROCURONIUM BROMIDE
     Dosage: 40 MILLIGRAM
     Route: 042
     Dates: start: 20250922, end: 20250922
  13. PROPOFOL [Concomitant]
     Active Substance: PROPOFOL
     Dosage: UNK
  14. PROPOFOL [Concomitant]
     Active Substance: PROPOFOL
     Dosage: UNK
     Route: 065
  15. PROPOFOL [Concomitant]
     Active Substance: PROPOFOL
     Dosage: UNK
     Route: 065
  16. PROPOFOL [Concomitant]
     Active Substance: PROPOFOL
     Dosage: UNK

REACTIONS (1)
  - Drug ineffective [Recovered/Resolved]

NARRATIVE: CASE EVENT DATE: 20250922
